FAERS Safety Report 10933983 (Version 1)
Quarter: 2015Q1

REPORT INFORMATION
  Report Type: Spontaneous
  Country: JP (occurrence: JP)
  Receive Date: 20150320
  Receipt Date: 20150320
  Transmission Date: 20150721
  Serious: Yes (Hospitalization)
  Sender: FDA-Public Use
  Company Number: JP-009507513-1503JPN008108

PATIENT
  Sex: Female

DRUGS (2)
  1. FOSAMAX [Suspect]
     Active Substance: ALENDRONATE SODIUM
     Dosage: DAILY DOSAGE UNKNOWN, QW
     Route: 048
  2. FOSAMAX [Suspect]
     Active Substance: ALENDRONATE SODIUM
     Dosage: DAILY DOSAGE UNKNOWN, QW
     Route: 048

REACTIONS (5)
  - Device breakage [Unknown]
  - Back pain [Not Recovered/Not Resolved]
  - Adverse event [Unknown]
  - Device failure [Unknown]
  - Skin wrinkling [Not Recovered/Not Resolved]

NARRATIVE: CASE EVENT DATE: 2013
